FAERS Safety Report 4987822-3 (Version None)
Quarter: 2006Q2

REPORT INFORMATION
  Report Type: 
  Country: None (occurrence: None)
  Receive Date: 20060424
  Receipt Date: 20060407
  Transmission Date: 20061013
  Serious: Yes (Other)
  Sender: FDA-Public Use
  Company Number: GB200603006203

PATIENT
  Age: 18 Year
  Sex: Female
  Weight: 70 kg

DRUGS (1)
  1. FLUOXETINE (FLUOXETINE HYDROCHLORIDE UNKNOWN MANUFACTURER) [Suspect]
     Indication: DEPRESSION
     Dosage: 20 MG, DAILY (1/D), ORAL
     Route: 048
     Dates: start: 20060316, end: 20060323

REACTIONS (2)
  - BRONCHOSPASM [None]
  - DYSPEPSIA [None]
